FAERS Safety Report 4817945-0 (Version None)
Quarter: 2005Q4

REPORT INFORMATION
  Report Type: 
  Country: None (occurrence: None)
  Receive Date: 20051102
  Receipt Date: 20051021
  Transmission Date: 20060501
  Serious: Yes (Life-Threatening)
  Sender: FDA-Public Use
  Company Number: FR-JNJFOC-20051005697

PATIENT
  Age: 21 Year
  Sex: Male

DRUGS (5)
  1. TOPALGIC [Suspect]
     Indication: PERIOPERATIVE ANALGESIA
     Route: 042
  2. PROFENID [Suspect]
     Indication: PERIOPERATIVE ANALGESIA
     Route: 042
  3. MORPHINE [Concomitant]
     Indication: PERIOPERATIVE ANALGESIA
     Route: 042
  4. PERFALGAN [Concomitant]
     Indication: PERIOPERATIVE ANALGESIA
     Route: 042
  5. BUPIVACAINE [Concomitant]
     Indication: SPINAL ANAESTHESIA
     Route: 065

REACTIONS (3)
  - BRONCHOSPASM [None]
  - RASH [None]
  - RESPIRATORY ARREST [None]
